FAERS Safety Report 10983672 (Version 1)
Quarter: 2015Q2

REPORT INFORMATION
  Report Type: Spontaneous
  Country: IT (occurrence: IT)
  Receive Date: 20150403
  Receipt Date: 20150403
  Transmission Date: 20150821
  Serious: Yes (Other)
  Sender: FDA-Public Use
  Company Number: IT-CELGENE-083-21660-14080587

PATIENT

DRUGS (3)
  1. GEMCITABINE [Suspect]
     Active Substance: GEMCITABINE\GEMCITABINE HYDROCHLORIDE
     Indication: PANCREATIC CARCINOMA METASTATIC
     Route: 065
  2. ABRAXANE [Suspect]
     Active Substance: PACLITAXEL
     Indication: PANCREATIC CARCINOMA METASTATIC
     Dosage: 125 MILLIGRAM/SQ. METER
     Route: 065
  3. ABRAXANE [Suspect]
     Active Substance: PACLITAXEL
     Indication: OFF LABEL USE

REACTIONS (8)
  - Fatigue [Unknown]
  - Neuropathy peripheral [Unknown]
  - Cardiovascular disorder [Unknown]
  - Thrombocytopenia [Unknown]
  - Neutropenia [Unknown]
  - Nervous system disorder [Unknown]
  - Pancreatic carcinoma [Unknown]
  - Anaemia [Unknown]
